FAERS Safety Report 11271953 (Version 1)
Quarter: 2015Q3

REPORT INFORMATION
  Report Type: Spontaneous
  Country: None (occurrence: None)
  Receive Date: 20150713
  Receipt Date: 20150713
  Transmission Date: 20151125
  Serious: Yes (Life-Threatening, Hospitalization)
  Sender: FDA-Public Use
  Company Number: None

PATIENT
  Age: 19 Year
  Sex: Female
  Weight: 62.14 kg

DRUGS (4)
  1. KEPPRA [Concomitant]
     Active Substance: LEVETIRACETAM
  2. ONE A DAY WOMEN MULTIVITAMIN [Concomitant]
  3. ZOMIG [Suspect]
     Active Substance: ZOLMITRIPTAN
     Indication: MIGRAINE
     Dosage: 1 SPRAY PER NOSTRIL AS NEEDED INHALATION
     Route: 055
     Dates: start: 20140701, end: 20140703
  4. MELATONIN [Concomitant]
     Active Substance: MELATONIN

REACTIONS (4)
  - Dysarthria [None]
  - Musculoskeletal disorder [None]
  - Quality of life decreased [None]
  - Cerebrovascular accident [None]

NARRATIVE: CASE EVENT DATE: 20140703
